FAERS Safety Report 16441851 (Version 1)
Quarter: 2019Q2

REPORT INFORMATION
  Report Type: Report from Study
  Country: None (occurrence: US)
  Receive Date: 20190617
  Receipt Date: 20190617
  Transmission Date: 20190711
  Serious: No
  Sender: FDA-Public Use
  Company Number: US-US WORLDMEDS, LLC-USW201808-001220

PATIENT
  Age: 82 Year
  Sex: Female

DRUGS (6)
  1. APOKYN [Suspect]
     Active Substance: APOMORPHINE HYDROCHLORIDE
     Indication: PARKINSON^S DISEASE
     Route: 058
     Dates: start: 20180726, end: 20180804
  2. FERROUS SULFATE. [Concomitant]
     Active Substance: FERROUS SULFATE
  3. PRIMIDONE. [Concomitant]
     Active Substance: PRIMIDONE
  4. LASIX [Concomitant]
     Active Substance: FUROSEMIDE
  5. AMLODIPINE [Concomitant]
     Active Substance: AMLODIPINE BESYLATE
  6. ASA [Concomitant]
     Active Substance: ASPIRIN

REACTIONS (1)
  - Nausea [Recovered/Resolved]

NARRATIVE: CASE EVENT DATE: 20180731
